FAERS Safety Report 9196073 (Version 1)
Quarter: 2013Q1

REPORT INFORMATION
  Report Type: Report from Study
  Country: CA (occurrence: CA)
  Receive Date: 20130328
  Receipt Date: 20130328
  Transmission Date: 20140127
  Serious: Yes (Other)
  Sender: FDA-Public Use
  Company Number: CA-JNJFOC-20130313596

PATIENT
  Sex: Female
  Weight: 99.79 kg

DRUGS (3)
  1. REMICADE [Suspect]
     Indication: RHEUMATOID ARTHRITIS
     Route: 042
  2. PREDNISONE [Concomitant]
     Indication: PRODUCT USED FOR UNKNOWN INDICATION
     Route: 065
     Dates: start: 2007
  3. PROLIA [Concomitant]
     Indication: OSTEOPOROSIS
     Route: 065

REACTIONS (2)
  - Diabetes mellitus [Unknown]
  - Osteoporosis [Unknown]
